FAERS Safety Report 4946406-3 (Version None)
Quarter: 2006Q1

REPORT INFORMATION
  Report Type: 
  Country: None (occurrence: None)
  Receive Date: 20060316
  Receipt Date: 20060316
  Transmission Date: 20060701
  Serious: Yes (Death)
  Sender: FDA-Public Use
  Company Number: None

PATIENT
  Sex: Female
  Weight: 88.4514 kg

DRUGS (6)
  1. IRINOTECAN HCL [Suspect]
     Indication: METASTATIC NEOPLASM
     Dosage: 177MG  D1 + 8 Q 21 D  IV
     Route: 042
     Dates: start: 20060215, end: 20060222
  2. GEMCITABINE [Suspect]
     Indication: METASTATIC NEOPLASM
     Dosage: 1770MG  D 1 + 8 Q 21 D  IV
     Route: 042
     Dates: start: 20060215, end: 20060222
  3. MG CITRATE [Concomitant]
  4. PEPCID AC [Concomitant]
  5. METFORMIN [Concomitant]
  6. PREDNISONE [Concomitant]

REACTIONS (14)
  - ABDOMINAL DISTENSION [None]
  - ABDOMINAL PAIN [None]
  - ABDOMINAL SEPSIS [None]
  - ACUTE PRERENAL FAILURE [None]
  - BLOOD PRESSURE DIASTOLIC DECREASED [None]
  - BODY TEMPERATURE DECREASED [None]
  - CARDIO-RESPIRATORY ARREST [None]
  - HEART RATE INCREASED [None]
  - METASTASES TO ABDOMINAL CAVITY [None]
  - RENAL FAILURE ACUTE [None]
  - RESPIRATORY RATE INCREASED [None]
  - SHOCK [None]
  - UROSEPSIS [None]
  - VOMITING [None]
